FAERS Safety Report 9238815 (Version 1)
Quarter: 2013Q1

REPORT INFORMATION
  Report Type: Spontaneous
  Country: US (occurrence: None)
  Receive Date: 20121107
  Receipt Date: 20121107
  Transmission Date: 20140127
  Serious: No
  Sender: FDA-Public Use
  Company Number: 2012HGS-003823

PATIENT
  Age: 47 Year
  Sex: Female
  Weight: 111.13 kg

DRUGS (16)
  1. BENLYSTA [Suspect]
     Indication: SYSTEMIC LUPUS ERYTHEMATOSUS
     Route: 041
     Dates: start: 201108
  2. AMITRIPTYLINE (AMITRPTYLINE HYDROCHLORIDE) (AMITRIPLYLINE HYDROCHLORIDE) [Concomitant]
  3. CARDIZEM (DILTIAZEM) (DILTIAZEM) [Concomitant]
  4. VOLTAREN (DICLOFENAC SODIUM) (DICLOFENAC SODIUM) [Concomitant]
  5. LASIX (FUROSEMIDE) (FUROSEMIDE) [Concomitant]
  6. PLAQUENIL (HYDROXYCHLOROUWINE) [Concomitant]
  7. POTASSIUM (POTASSIUM (POTASSIUM) [Concomitant]
  8. PREDNISONE (PREDNISONE) (PREDNISONE) [Concomitant]
  9. PROTONIX (PANTOPRAZONE SODIUM SESQUIHYDRATE) (PANTOPRAZOLE SODIUM SEQUIHYDRATE) [Concomitant]
  10. RESTASIS (CICLOSPORIN) (CICOSPORIN) [Concomitant]
  11. TRAMADOL (TRAMADOL) (TRAMADOL) [Concomitant]
  12. FLEXERIL (CYCLOBENAZAPRINE) [Concomitant]
  13. NORCO (VICODIN) (PARACETAMOL, HYDROCODONE BITARTRATE) [Concomitant]
  14. FENTANYL (FENTANYL) (FENTANYL) [Concomitant]
  15. FORTEO (TERIPARATIDE) (TERIPARATIDE) [Concomitant]
  16. TOPAMAX (TOPIRAMATE) (TOPIRAMATE) [Concomitant]

REACTIONS (3)
  - Alopecia [None]
  - Feeling cold [None]
  - Pruritus generalised [None]
